FAERS Safety Report 11227513 (Version 1)
Quarter: 2015Q2

REPORT INFORMATION
  Report Type: Report from Study
  Country: BE (occurrence: BE)
  Receive Date: 20150630
  Receipt Date: 20150630
  Transmission Date: 20150821
  Serious: Yes (Hospitalization)
  Sender: FDA-Public Use
  Company Number: BE-JNJFOC-20150616717

PATIENT
  Age: 40 Year
  Sex: Female

DRUGS (1)
  1. GOLIMUMAB [Suspect]
     Active Substance: GOLIMUMAB
     Indication: SPONDYLITIS
     Route: 058
     Dates: start: 20130226

REACTIONS (1)
  - Papillary thyroid cancer [Recovered/Resolved]

NARRATIVE: CASE EVENT DATE: 20150608
